FAERS Safety Report 14683461 (Version 1)
Quarter: 2018Q1

REPORT INFORMATION
  Report Type: Spontaneous
  Country: US (occurrence: US)
  Receive Date: 20180327
  Receipt Date: 20180327
  Transmission Date: 20180509
  Serious: Yes (Other)
  Sender: FDA-Public Use
  Company Number: US-PFIZER INC-2018124762

PATIENT

DRUGS (2)
  1. IBRANCE [Suspect]
     Active Substance: PALBOCICLIB
     Dosage: UNK  [DOSE REDUCED TWICE DOWN TO 75]
  2. IBRANCE [Suspect]
     Active Substance: PALBOCICLIB
     Dosage: UNK  [125]

REACTIONS (1)
  - Thrombocytopenia [Recovered/Resolved]
